FAERS Safety Report 12984160 (Version 2)
Quarter: 2019Q2

REPORT INFORMATION
  Report Type: Spontaneous
  Country: IR (occurrence: IR)
  Receive Date: 20161129
  Receipt Date: 20190605
  Transmission Date: 20190711
  Serious: Yes (Life-Threatening, Hospitalization, Other)
  Sender: FDA-Public Use
  Company Number: IR-PFIZER INC-2015319599

PATIENT
  Age: 20 Year
  Sex: Female

DRUGS (1)
  1. METHOTREXATE SODIUM. [Suspect]
     Active Substance: METHOTREXATE SODIUM
     Indication: GESTATIONAL TROPHOBLASTIC TUMOUR
     Dosage: 50 MG/M2 PER WEEK, MTX 90MG
     Route: 030

REACTIONS (14)
  - Liver function test increased [Recovering/Resolving]
  - White blood cell count increased [Recovering/Resolving]
  - Renal function test abnormal [Recovering/Resolving]
  - Nausea [Recovering/Resolving]
  - Toxicity to various agents [Recovered/Resolved]
  - Thrombocytopenia [Recovering/Resolving]
  - Skin erosion [Recovering/Resolving]
  - Asthenia [Recovering/Resolving]
  - Parotid gland enlargement [Recovering/Resolving]
  - Pyrexia [Recovering/Resolving]
  - Neutropenia [Recovering/Resolving]
  - Vomiting [Recovering/Resolving]
  - Tachycardia [Recovering/Resolving]
  - Face oedema [Recovering/Resolving]
